FAERS Safety Report 16461052 (Version 2)
Quarter: 2019Q2

REPORT INFORMATION
  Report Type: Spontaneous
  Country: US (occurrence: US)
  Receive Date: 20190621
  Receipt Date: 20190624
  Transmission Date: 20190711
  Serious: No
  Sender: FDA-Public Use
  Company Number: US-GLAXOSMITHKLINE-US2019110296

PATIENT
  Age: 38 Year
  Sex: Female

DRUGS (2)
  1. ABREVA [Suspect]
     Active Substance: DOCOSANOL
     Indication: ORAL HERPES
     Dosage: UNK, QD (3 TO 4 TIMES A DAY)
     Route: 061
     Dates: start: 20190610
  2. ABREVA [Suspect]
     Active Substance: DOCOSANOL
     Dosage: UNK, QD (3 TO 4 TIMES A DAY)
     Route: 061
     Dates: start: 20190610

REACTIONS (2)
  - Incorrect product administration duration [Unknown]
  - Inappropriate schedule of product administration [Unknown]

NARRATIVE: CASE EVENT DATE: 20190610
